FAERS Safety Report 25419999 (Version 2)
Quarter: 2025Q3

REPORT INFORMATION
  Report Type: Spontaneous
  Country: US (occurrence: US)
  Receive Date: 20250610
  Receipt Date: 20250817
  Transmission Date: 20251021
  Serious: No
  Sender: SANOFI AVENTIS
  Company Number: US-SA-2025SA164035

PATIENT
  Age: 36 Year
  Sex: Female

DRUGS (2)
  1. KEVZARA [Suspect]
     Active Substance: SARILUMAB
     Indication: Rheumatoid arthritis
     Dosage: 200 MG, QOW
     Route: 058
     Dates: start: 202010, end: 20250604
  2. KEVZARA [Suspect]
     Active Substance: SARILUMAB
     Dosage: 200 MG, QOW
     Route: 058
     Dates: start: 2025

REACTIONS (5)
  - Illness [Unknown]
  - Swollen joint count increased [Unknown]
  - Arthralgia [Unknown]
  - Product dose omission issue [Unknown]
  - Rebound effect [Unknown]

NARRATIVE: CASE EVENT DATE: 20250101
